FAERS Safety Report 23677629 (Version 1)
Quarter: 2024Q1

REPORT INFORMATION
  Report Type: Spontaneous
  Country: JP (occurrence: JP)
  Receive Date: 20240327
  Receipt Date: 20240327
  Transmission Date: 20240410
  Serious: Yes (Other)
  Sender: FDA-Public Use
  Company Number: JP-CHUGAI-2024008607

PATIENT
  Age: 8 Decade

DRUGS (1)
  1. VABYSMO [Suspect]
     Active Substance: FARICIMAB\FARICIMAB-SVOA
     Indication: Neovascular age-related macular degeneration
     Dosage: 0.05 MILLILITER, ONCE/4WEEKS
     Route: 065

REACTIONS (3)
  - Retinal pigment epithelial tear [Not Recovered/Not Resolved]
  - Eye inflammation [Recovering/Resolving]
  - Ocular vasculitis [Unknown]

NARRATIVE: CASE EVENT DATE: 20240309
